FAERS Safety Report 7946173-5 (Version None)
Quarter: 2011Q4

REPORT INFORMATION
  Report Type: 
  Country: None (occurrence: None)
  Receive Date: 20111129
  Receipt Date: 20111123
  Transmission Date: 20120403
  Serious: Yes (Hospitalization)
  Sender: FDA-Public Use
  Company Number: GB-GLAXOSMITHKLINE-B0765232A

PATIENT
  Sex: Male

DRUGS (2)
  1. ASTHMA MEDICATION [Concomitant]
  2. ZANTAC [Suspect]
     Indication: GASTROOESOPHAGEAL REFLUX DISEASE
     Route: 065

REACTIONS (8)
  - ATRIOVENTRICULAR BLOCK [None]
  - PALPITATIONS [None]
  - HEART RATE IRREGULAR [None]
  - DIZZINESS [None]
  - ANXIETY [None]
  - ASTHENIA [None]
  - DYSSTASIA [None]
  - THERAPEUTIC RESPONSE UNEXPECTED [None]
